FAERS Safety Report 5442922-9 (Version None)
Quarter: 2007Q3

REPORT INFORMATION
  Report Type: 
  Country: None (occurrence: None)
  Receive Date: 20070830
  Receipt Date: 20070809
  Transmission Date: 20080115
  Serious: Yes (Congenital Anomaly)
  Sender: FDA-Public Use
  Company Number: S07-SWI-03636-01

PATIENT
  Age: 30 Year
  Sex: Female

DRUGS (9)
  1. ESCITALOPRAM [Suspect]
     Indication: AFFECT LABILITY
     Dosage: 10 MG BID PO
     Route: 048
     Dates: start: 20060101
  2. CONCERTA [Suspect]
     Indication: AFFECT LABILITY
     Dosage: 54 MG QD PO
     Route: 048
     Dates: start: 20060101
  3. ZYPREXA [Suspect]
     Indication: AFFECT LABILITY
     Dosage: 5 MG QD PO
     Route: 048
     Dates: start: 20060101
  4. METHADONE [Suspect]
     Indication: ABNORMAL BEHAVIOUR
     Dosage: 25 MG QD PO
     Route: 048
     Dates: start: 20060101
  5. METHADONE [Suspect]
     Indication: MENTAL DISORDER
     Dosage: 25 MG QD PO
     Route: 048
     Dates: start: 20060101
  6. OXAZEPAM [Suspect]
     Indication: ABNORMAL BEHAVIOUR
     Dosage: 75 MG QD PO
     Route: 048
     Dates: start: 20060101
  7. OXAZEPAM [Suspect]
     Indication: MENTAL DISORDER
     Dosage: 75 MG QD PO
     Route: 048
     Dates: start: 20060101
  8. VALIUM [Suspect]
     Indication: ABNORMAL BEHAVIOUR
     Dosage: 5 MG BID PO
     Route: 048
     Dates: start: 20070101
  9. VALIUM [Suspect]
     Indication: MENTAL DISORDER
     Dosage: 5 MG BID PO
     Route: 048
     Dates: start: 20070101

REACTIONS (4)
  - ABORTION INDUCED [None]
  - DRUG EXPOSURE DURING PREGNANCY [None]
  - HEART DISEASE CONGENITAL [None]
  - PREGNANCY [None]
